FAERS Safety Report 10820938 (Version 1)
Quarter: 2015Q1

REPORT INFORMATION
  Report Type: Spontaneous
  Country: US (occurrence: US)
  Receive Date: 20150218
  Receipt Date: 20150218
  Transmission Date: 20150721
  Serious: Yes (Hospitalization, Other)
  Sender: FDA-Public Use
  Company Number: US-CELGENEUS-163-21880-14011681

PATIENT
  Age: 78 Year
  Sex: Female

DRUGS (2)
  1. ZOMETA [Concomitant]
     Active Substance: ZOLEDRONIC ACID
     Indication: PLASMA CELL MYELOMA
     Route: 065
     Dates: start: 20130401
  2. REVLIMID [Suspect]
     Active Substance: LENALIDOMIDE
     Indication: PLASMA CELL MYELOMA
     Dosage: 15 MILLIGRAM
     Route: 048
     Dates: start: 20130401, end: 201307

REACTIONS (4)
  - Blood immunoglobulin A increased [Unknown]
  - Pancytopenia [Unknown]
  - Cardiac failure congestive [Unknown]
  - Pneumonia [Unknown]

NARRATIVE: CASE EVENT DATE: 201307
